FAERS Safety Report 7243035-6 (Version None)
Quarter: 2011Q1

REPORT INFORMATION
  Report Type: 
  Country: None (occurrence: None)
  Receive Date: 20110125
  Receipt Date: 20101014
  Transmission Date: 20110831
  Serious: No
  Sender: FDA-Public Use
  Company Number: US-AMGEN-USASP2010000367

PATIENT
  Age: 88 Year
  Sex: Female
  Weight: 59.9 kg

DRUGS (4)
  1. PROLIA [Suspect]
     Indication: OSTEOPOROSIS POSTMENOPAUSAL
     Dosage: UNK
     Dates: start: 20100823
  2. CAL-EZ [Concomitant]
     Dosage: UNK
  3. TRIAMCINOLONE [Concomitant]
     Dosage: UNK
  4. VITAMIN A [Concomitant]
     Dosage: UNK

REACTIONS (2)
  - LIMB DISCOMFORT [None]
  - PAIN IN EXTREMITY [None]
